FAERS Safety Report 25617346 (Version 1)
Quarter: 2025Q3

REPORT INFORMATION
  Report Type: Spontaneous
  Country: US (occurrence: US)
  Receive Date: 20250729
  Receipt Date: 20250729
  Transmission Date: 20251020
  Serious: Yes (Hospitalization)
  Sender: BAYER HEALTHCARE PHARMACEUTICALS INC.
  Company Number: US-MLMSERVICE-20250709-PI571992-00291-1

PATIENT
  Age: 8 Decade
  Sex: Male

DRUGS (2)
  1. DAROLUTAMIDE [Interacting]
     Active Substance: DAROLUTAMIDE
     Indication: Hormone-refractory prostate cancer
     Dosage: 300 MG, QD
  2. ROSUVASTATIN [Suspect]
     Active Substance: ROSUVASTATIN
     Dosage: 40 MG, QD, ~POTENTIALLY RECEIVING FIVE TIMES THE MAXIMUM DOSE

REACTIONS (2)
  - Rhabdomyolysis [Recovering/Resolving]
  - Labelled drug-drug interaction issue [Recovering/Resolving]
